FAERS Safety Report 6029963-8 (Version None)
Quarter: 2009Q1

REPORT INFORMATION
  Report Type: 
  Country: None (occurrence: None)
  Receive Date: 20090107
  Receipt Date: 20090105
  Transmission Date: 20090719
  Serious: Yes (Other)
  Sender: FDA-Public Use
  Company Number: A0762545A

PATIENT
  Age: 35 Year
  Sex: Female

DRUGS (1)
  1. IMITREX [Suspect]
     Indication: MIGRAINE
     Dosage: 100MG PER DAY
     Route: 048

REACTIONS (3)
  - BLEEDING PERIPARTUM [None]
  - DRUG EXPOSURE DURING PREGNANCY [None]
  - LIVE BIRTH [None]
